FAERS Safety Report 16064483 (Version 4)
Quarter: 2019Q2

REPORT INFORMATION
  Report Type: Report from Study
  Country: BR (occurrence: BR)
  Receive Date: 20190312
  Receipt Date: 20190626
  Transmission Date: 20190711
  Serious: Yes (Life-Threatening, Hospitalization, Other)
  Sender: FDA-Public Use
  Company Number: PHHY2019BR055723

PATIENT
  Age: 76 Year
  Sex: Female
  Weight: 45 kg

DRUGS (8)
  1. PREDNISONE. [Suspect]
     Active Substance: PREDNISONE
     Indication: HERPES ZOSTER
     Dosage: 1 DF, QD
     Route: 048
     Dates: start: 201905
  2. HISTAMINE [Suspect]
     Active Substance: HISTAMINE
     Indication: PRURITUS
     Dosage: UNK
     Route: 061
     Dates: start: 201905
  3. DRAMIN B6 [Concomitant]
     Indication: DIZZINESS
     Dosage: 1 DF, BID
     Route: 048
     Dates: start: 201905
  4. PREDNISONE. [Suspect]
     Active Substance: PREDNISONE
     Indication: SKIN DISORDER
  5. LABIRIN [Concomitant]
     Active Substance: BETAHISTINE
     Indication: DIZZINESS
     Dosage: 2 DF, BID
     Route: 048
     Dates: start: 201905
  6. PREDNISONE. [Suspect]
     Active Substance: PREDNISONE
     Indication: PRURITUS
  7. ACLASTA [Suspect]
     Active Substance: ZOLEDRONIC ACID
     Indication: OSTEOPOROSIS
     Dosage: 5 MG, Q12MO
     Route: 042
     Dates: start: 201805
  8. AVAMYS [Concomitant]
     Active Substance: FLUTICASONE FUROATE
     Indication: RHINITIS
     Dosage: ONE IN EACH NOSTRIL
     Route: 055

REACTIONS (28)
  - Pyrexia [Recovered/Resolved]
  - Bone pain [Recovering/Resolving]
  - Depression [Unknown]
  - Head discomfort [Unknown]
  - Pruritus [Recovered/Resolved]
  - Malaise [Recovering/Resolving]
  - Musculoskeletal discomfort [Recovering/Resolving]
  - Gait disturbance [Recovered/Resolved]
  - Sensory loss [Recovering/Resolving]
  - Headache [Unknown]
  - Skin disorder [Unknown]
  - Head injury [Recovering/Resolving]
  - Liver disorder [Unknown]
  - Fall [Recovered/Resolved]
  - Anxiety [Not Recovered/Not Resolved]
  - Nausea [Recovering/Resolving]
  - Abdominal discomfort [Recovering/Resolving]
  - Neuralgia [Recovering/Resolving]
  - Hypoaesthesia [Unknown]
  - Weight decreased [Not Recovered/Not Resolved]
  - Cough [Recovered/Resolved]
  - Wrist fracture [Recovered/Resolved]
  - Pneumonia [Unknown]
  - Bacteraemia [Recovering/Resolving]
  - Herpes zoster [Unknown]
  - Dizziness [Recovering/Resolving]
  - Loss of consciousness [Recovering/Resolving]
  - Ear disorder [Recovering/Resolving]

NARRATIVE: CASE EVENT DATE: 20190408
